FAERS Safety Report 8960387 (Version 3)
Quarter: 2013Q1

REPORT INFORMATION
  Report Type: Spontaneous
  Country: US (occurrence: US)
  Receive Date: 20121212
  Receipt Date: 20130313
  Transmission Date: 20140127
  Serious: Yes (Hospitalization)
  Sender: FDA-Public Use
  Company Number: US-BAYER-2012-129262

PATIENT
  Age: 49 Year
  Sex: Female
  Weight: 70.3 kg

DRUGS (5)
  1. YAZ [Suspect]
     Indication: OVARIAN CYST
     Dosage: UNK
     Dates: start: 2002, end: 2011
  2. YAZ [Suspect]
     Indication: OVARIAN CYST
     Dosage: UNK
  3. YASMIN [Suspect]
     Indication: OVARIAN CYST
     Dosage: UNK
     Dates: start: 2002, end: 2011
  4. NSAID^S [Concomitant]
     Dosage: UNK
     Dates: start: 1975
  5. WELLBUTRIN [Concomitant]
     Indication: ANXIETY
     Dosage: UNK
     Dates: start: 2002

REACTIONS (10)
  - Thrombosis [None]
  - Deep vein thrombosis [None]
  - Pain [None]
  - Injury [None]
  - General physical health deterioration [None]
  - Anxiety [None]
  - Anhedonia [None]
  - Pain [None]
  - Off label use [None]
  - Emotional distress [None]
